FAERS Safety Report 21624156 (Version 3)
Quarter: 2024Q1

REPORT INFORMATION
  Report Type: Spontaneous
  Country: None (occurrence: US)
  Receive Date: 20221121
  Receipt Date: 20240118
  Transmission Date: 20240409
  Serious: Yes (Other)
  Sender: FDA-Public Use
  Company Number: US-Amphastar Pharmaceuticals, Inc.-2135123

PATIENT
  Age: 74 Year
  Sex: Female
  Weight: 63.636 kg

DRUGS (19)
  1. GLUCAGON [Suspect]
     Active Substance: GLUCAGON\GLUCAGON HYDROCHLORIDE\WATER
     Indication: Blood glucose decreased
  2. DEVICE [Suspect]
     Active Substance: DEVICE
  3. DEVICE [Suspect]
     Active Substance: DEVICE
  4. DEVICE [Suspect]
     Active Substance: DEVICE
  5. DEVICE [Concomitant]
     Active Substance: DEVICE
  6. OCUVITE [Concomitant]
     Active Substance: VITAMINS
  7. ISOSORBIDE [Concomitant]
     Active Substance: ISOSORBIDE
  8. VITAMIN B6 [Concomitant]
     Active Substance: PYRIDOXINE HYDROCHLORIDE
  9. LORATADINE [Concomitant]
     Active Substance: LORATADINE
  10. FLUTICASONE PROPIONATE [Concomitant]
     Active Substance: FLUTICASONE PROPIONATE
  11. LISINOPRIL [Concomitant]
     Active Substance: LISINOPRIL
  12. SIMVASTATIN [Concomitant]
     Active Substance: SIMVASTATIN
  13. ASPIRIN [Concomitant]
     Active Substance: ASPIRIN
  14. PAROXETINE [Concomitant]
     Active Substance: PAROXETINE
  15. METOPROLOL [Concomitant]
     Active Substance: METOPROLOL
  16. LODOPIN [Concomitant]
  17. BREO ELLIPTA [Concomitant]
     Active Substance: FLUTICASONE FUROATE\VILANTEROL TRIFENATATE
  18. LEVALBUTEROL [Concomitant]
     Active Substance: LEVALBUTEROL
  19. NADOLOL [Concomitant]
     Active Substance: NADOLOL

REACTIONS (1)
  - Product dose omission issue [Recovered/Resolved]

NARRATIVE: CASE EVENT DATE: 20221105
